FAERS Safety Report 7649313-0 (Version None)
Quarter: 2011Q3

REPORT INFORMATION
  Report Type: 
  Country: None (occurrence: None)
  Receive Date: 20110802
  Receipt Date: 20110725
  Transmission Date: 20111222
  Serious: Yes (Death)
  Sender: FDA-Public Use
  Company Number: IE-AMGEN-IRLSP2011032526

PATIENT
  Sex: Female

DRUGS (11)
  1. NAPROXEN [Concomitant]
  2. CIPRAMIL                           /00582602/ [Concomitant]
  3. MAXOLON [Concomitant]
  4. ARANESP [Suspect]
     Indication: ANAEMIA OF MALIGNANT DISEASE
     Dosage: 500 A?G, UNK
     Route: 058
     Dates: start: 20110323
  5. ROMEP [Concomitant]
  6. OXYCODONE HCL [Concomitant]
  7. XANAX [Concomitant]
  8. ASPIRIN [Concomitant]
  9. FOLIC ACID [Concomitant]
  10. MINOSIL [Concomitant]
  11. MOTILIUM                           /00498201/ [Concomitant]

REACTIONS (3)
  - NON-SMALL CELL LUNG CANCER [None]
  - NEOPLASM PROGRESSION [None]
  - DISEASE PROGRESSION [None]
